FAERS Safety Report 4710970-X (Version None)
Quarter: 2005Q3

REPORT INFORMATION
  Report Type: 
  Country: None (occurrence: None)
  Receive Date: 20050711
  Receipt Date: 20050704
  Transmission Date: 20060218
  Serious: Yes (Hospitalization)
  Sender: FDA-Public Use
  Company Number: PHNR2005AU01031

PATIENT
  Age: 50 Year
  Sex: Female

DRUGS (6)
  1. TEGRETOL [Suspect]
     Dosage: 800 MG, QD
     Route: 048
  2. DI-GESIC [Suspect]
     Indication: PAIN
     Dosage: 2 TABLETS AS NECESSARY
     Dates: start: 20040201, end: 20040201
  3. INDERAL [Concomitant]
  4. DUCENE [Concomitant]
  5. BRUFEN [Concomitant]
  6. ACETAMINOPHEN W/ CODEINE [Concomitant]

REACTIONS (11)
  - APNOEA [None]
  - CIRCULATORY COLLAPSE [None]
  - DRUG INTERACTION [None]
  - DRUG LEVEL INCREASED [None]
  - ELECTROCARDIOGRAM ABNORMAL [None]
  - ELECTROCARDIOGRAM QT PROLONGED [None]
  - HYPOXIA [None]
  - MYOCARDIAL INFARCTION [None]
  - RESPIRATORY DISTRESS [None]
  - SINUS BRADYCARDIA [None]
  - TROPONIN I INCREASED [None]
